FAERS Safety Report 8111220-7 (Version None)
Quarter: 2012Q1

REPORT INFORMATION
  Report Type: 
  Country: None (occurrence: None)
  Receive Date: 20120203
  Receipt Date: 20110629
  Transmission Date: 20120608
  Serious: No
  Sender: FDA-Public Use
  Company Number: US-GLAXOSMITHKLINE-A0933890A

PATIENT

DRUGS (2)
  1. LAMICTAL [Suspect]
     Indication: BIPOLAR DISORDER
     Dosage: 150MG FOUR TIMES PER DAY
     Route: 048
     Dates: start: 20080101
  2. PAXIL CR [Concomitant]
     Route: 048

REACTIONS (4)
  - RETCHING [None]
  - DYSGEUSIA [None]
  - OVERDOSE [None]
  - DYSPHAGIA [None]
